FAERS Safety Report 19188695 (Version 1)
Quarter: 2021Q2

REPORT INFORMATION
  Report Type: Report from Study
  Country: CA (occurrence: CA)
  Receive Date: 20210427
  Receipt Date: 20210427
  Transmission Date: 20210717
  Serious: Yes (Other)
  Sender: FDA-Public Use
  Company Number: CA-BRISTOL-MYERS SQUIBB COMPANY-BMS-2021-028550

PATIENT
  Age: 59 Year
  Sex: Male
  Weight: 115 kg

DRUGS (6)
  1. YERVOY [Suspect]
     Active Substance: IPILIMUMAB
     Dosage: 112 MILLIGRAM, Q6WK
     Route: 065
  2. NIVOLUMAB [Suspect]
     Active Substance: NIVOLUMAB
     Indication: THYROID CANCER
     Dosage: 3 MILLIGRAM/KILOGRAM, Q3WK
     Route: 065
     Dates: start: 20210322
  3. NIVOLUMAB [Suspect]
     Active Substance: NIVOLUMAB
     Dosage: 339 MILLIGRAM, Q2WK
     Route: 042
  4. YERVOY [Suspect]
     Active Substance: IPILIMUMAB
     Indication: THYROID CANCER
     Dosage: 1 MILLIGRAM/KILOGRAM, Q6WK
     Route: 065
     Dates: start: 20210322
  5. NIVOLUMAB [Suspect]
     Active Substance: NIVOLUMAB
     Dosage: 340 MILLIGRAM, Q2WK
     Route: 042
  6. NIVOLUMAB [Suspect]
     Active Substance: NIVOLUMAB
     Dosage: 337 MILLIGRAM, Q3WK
     Route: 065

REACTIONS (11)
  - Joint swelling [Unknown]
  - Asthenia [Unknown]
  - Pharyngeal swelling [Unknown]
  - Chest pain [Unknown]
  - Deafness [Unknown]
  - Increased appetite [Unknown]
  - Weight increased [Unknown]
  - Heart rate increased [Unknown]
  - Cough [Unknown]
  - Blood pressure systolic increased [Unknown]
  - Intentional product use issue [Unknown]

NARRATIVE: CASE EVENT DATE: 20210322
